FAERS Safety Report 7096644-1 (Version None)
Quarter: 2010Q4

REPORT INFORMATION
  Report Type: 
  Country: None (occurrence: None)
  Receive Date: 20101111
  Receipt Date: 20101104
  Transmission Date: 20110411
  Serious: Yes (Life-Threatening)
  Sender: FDA-Public Use
  Company Number: PHHY2010JP68482

PATIENT
  Age: 76 Year
  Sex: Female

DRUGS (3)
  1. FEMARA [Suspect]
     Indication: BREAST CANCER
     Route: 048
  2. AMLODIPINE [Concomitant]
  3. GLYBURIDE [Concomitant]

REACTIONS (1)
  - HYPOKALAEMIA [None]
